FAERS Safety Report 6804277-4 (Version None)
Quarter: 2010Q2

REPORT INFORMATION
  Report Type: 
  Country: None (occurrence: None)
  Receive Date: 20100628
  Receipt Date: 20070305
  Transmission Date: 20101027
  Serious: No
  Sender: FDA-Public Use
  Company Number: US-PFIZER INC-2007017676

PATIENT
  Sex: Female
  Weight: 81.65 kg

DRUGS (2)
  1. GEODON [Suspect]
     Indication: BORDERLINE PERSONALITY DISORDER
     Dates: start: 20070101, end: 20070302
  2. CYMBALTA [Concomitant]
     Indication: DEPRESSION
     Dates: start: 20070101

REACTIONS (6)
  - ASTHENIA [None]
  - BRUXISM [None]
  - CRYING [None]
  - GAIT DISTURBANCE [None]
  - GALACTORRHOEA [None]
  - TREMOR [None]
